FAERS Safety Report 11198836 (Version 2)
Quarter: 2015Q2

REPORT INFORMATION
  Report Type: Spontaneous
  Country: BE (occurrence: None)
  Receive Date: 20150616
  Receipt Date: 20150625
  Transmission Date: 20150821
  Serious: Yes (Other)
  Sender: FDA-Public Use
  Company Number: 2015FE01974

PATIENT
  Age: 11 Year
  Sex: Male
  Weight: 23 kg

DRUGS (1)
  1. ZOMACTON [Suspect]
     Active Substance: SOMATROPIN
     Indication: GROWTH HORMONE DEFICIENCY
     Dosage: 1 TIME DAILY
     Dates: start: 20150408

REACTIONS (1)
  - Tibia fracture [None]

NARRATIVE: CASE EVENT DATE: 20150603
